FAERS Safety Report 23430947 (Version 1)
Quarter: 2024Q1

REPORT INFORMATION
  Report Type: Other
  Country: US (occurrence: None)
  Receive Date: 20240123
  Receipt Date: 20240123
  Transmission Date: 20240410
  Serious: Yes (Other)
  Sender: FDA-Public Use
  Company Number: US-ROCHE-3492894

PATIENT
  Age: 80 Year
  Sex: Female

DRUGS (15)
  1. ACTEMRA [Suspect]
     Active Substance: TOCILIZUMAB
     Indication: Rheumatoid arthritis
     Route: 058
  2. ACTEMRA [Suspect]
     Active Substance: TOCILIZUMAB
  3. CELLCEPT [Suspect]
     Active Substance: MYCOPHENOLATE MOFETIL
     Indication: Product used for unknown indication
     Route: 048
     Dates: start: 20230912, end: 20240110
  4. ACIPHEX [Concomitant]
     Active Substance: RABEPRAZOLE SODIUM
  5. OFEV [Concomitant]
     Active Substance: NINTEDANIB
  6. SYNTHROID [Concomitant]
     Active Substance: LEVOTHYROXINE SODIUM
  7. INDAPAMIDE [Concomitant]
     Active Substance: INDAPAMIDE
  8. FOLIC ACID [Concomitant]
     Active Substance: FOLIC ACID
  9. WELLBUTRIN [Concomitant]
     Active Substance: BUPROPION HYDROCHLORIDE
  10. VITAMIN D3 [Concomitant]
     Active Substance: CHOLECALCIFEROL
  11. PROLIA [Concomitant]
     Active Substance: DENOSUMAB
  12. PLAVIX [Concomitant]
     Active Substance: CLOPIDOGREL BISULFATE
  13. LYRICA [Concomitant]
     Active Substance: PREGABALIN
  14. MEDROL [Concomitant]
     Active Substance: METHYLPREDNISOLONE
  15. ONDANSETRON [Concomitant]
     Active Substance: ONDANSETRON

REACTIONS (17)
  - Psoriatic arthropathy [Unknown]
  - Interstitial lung disease [Unknown]
  - Osteoporosis [Unknown]
  - Back pain [Unknown]
  - Anaphylactic reaction [Unknown]
  - Osteoarthritis [Unknown]
  - Nail candida [Unknown]
  - Vitamin D deficiency [Unknown]
  - Pulmonary arterial hypertension [Unknown]
  - Psoriasis [Unknown]
  - Hypokalaemia [Unknown]
  - Dyspnoea [Unknown]
  - Rash [Unknown]
  - Joint stiffness [Unknown]
  - Neck pain [Unknown]
  - Trigger finger [Unknown]
  - Skin candida [Unknown]
